FAERS Safety Report 22297170 (Version 1)
Quarter: 2023Q2

REPORT INFORMATION
  Report Type: Spontaneous
  Country: US (occurrence: US)
  Receive Date: 20230509
  Receipt Date: 20230509
  Transmission Date: 20230721
  Serious: No
  Sender: FDA-Public Use
  Company Number: US-SUN PHARMACEUTICAL INDUSTRIES LTD-2023R1-375272

PATIENT
  Sex: Female

DRUGS (1)
  1. ORTIKOS [Suspect]
     Active Substance: BUDESONIDE
     Indication: Product used for unknown indication
     Dosage: 9 MILLIGRAM
     Route: 065

REACTIONS (2)
  - Condition aggravated [Unknown]
  - Product use issue [Unknown]
